FAERS Safety Report 5248915-9 (Version None)
Quarter: 2007Q1

REPORT INFORMATION
  Report Type: 
  Country: None (occurrence: None)
  Receive Date: 20070228
  Receipt Date: 20070223
  Transmission Date: 20070707
  Serious: Yes (Other)
  Sender: FDA-Public Use
  Company Number: FRWYE762223FEB07

PATIENT
  Age: 30 Year
  Sex: Male

DRUGS (1)
  1. TYGACIL [Suspect]
     Indication: ATYPICAL MYCOBACTERIAL INFECTION
     Dosage: UNKNOWN
     Route: 042
     Dates: start: 20060601, end: 20070101

REACTIONS (1)
  - HYPERTRIGLYCERIDAEMIA [None]
